FAERS Safety Report 22258360 (Version 1)
Quarter: 2023Q2

REPORT INFORMATION
  Report Type: Report from Study
  Country: CA (occurrence: CA)
  Receive Date: 20230427
  Receipt Date: 20230427
  Transmission Date: 20230722
  Serious: Yes (Other)
  Sender: FDA-Public Use
  Company Number: CA-002147023-NVSC2023CA092374

PATIENT
  Age: 61 Year
  Sex: Female

DRUGS (1)
  1. HYRIMOZ [Suspect]
     Active Substance: ADALIMUMAB-ADAZ
     Indication: Rheumatoid arthritis
     Dosage: 40 MG, QMO
     Route: 058
     Dates: start: 20230113

REACTIONS (3)
  - C-reactive protein decreased [Unknown]
  - Inflammation [Unknown]
  - Abdominal discomfort [Unknown]
